FAERS Safety Report 23154117 (Version 1)
Quarter: 2023Q4

REPORT INFORMATION
  Report Type: Spontaneous
  Country: FR (occurrence: FR)
  Receive Date: 20231107
  Receipt Date: 20231107
  Transmission Date: 20240109
  Serious: Yes (Life-Threatening)
  Sender: FDA-Public Use
  Company Number: None

PATIENT
  Age: 77 Year
  Sex: Male

DRUGS (5)
  1. PROPOFOL [Suspect]
     Active Substance: PROPOFOL
     Indication: Induction of anaesthesia
     Route: 042
     Dates: start: 20230503, end: 20230503
  2. MIDAZOLAM [Suspect]
     Active Substance: MIDAZOLAM
     Indication: Spinal anaesthesia
     Route: 037
     Dates: start: 20230503, end: 20230503
  3. MORPHINE [Suspect]
     Active Substance: MORPHINE
     Indication: Spinal anaesthesia
     Route: 037
     Dates: start: 20230503, end: 20230503
  4. CISATRACURIUM [Suspect]
     Active Substance: CISATRACURIUM
     Indication: Induction of anaesthesia
     Route: 042
     Dates: start: 20230503, end: 20230503
  5. SUFENTANIL [Suspect]
     Active Substance: SUFENTANIL
     Indication: Induction of anaesthesia
     Route: 042
     Dates: start: 20230503, end: 20230503

REACTIONS (1)
  - Anaphylactic reaction [Recovered/Resolved]

NARRATIVE: CASE EVENT DATE: 20230503
